FAERS Safety Report 10620503 (Version 1)
Quarter: 2014Q4

REPORT INFORMATION
  Report Type: Report from Study
  Country: FR (occurrence: FR)
  Receive Date: 20141202
  Receipt Date: 20141202
  Transmission Date: 20150529
  Serious: Yes (Death)
  Sender: FDA-Public Use
  Company Number: FR-BAXTER-2014BAX071624

PATIENT

DRUGS (3)
  1. BORTEZOMIB [Suspect]
     Active Substance: BORTEZOMIB
     Indication: CARDIAC AMYLOIDOSIS
     Dosage: 1.0-1.5 MG/M2 ADMINISTERED EITHER WEEKLY (DAYS 1, 8, 15 AND 22 IN A 4- OR 5-WEEK SCHEDULE) OR TWICE
     Route: 065
  2. ENDOXAN 500 MG, POUDRE POUR SOLUTION INJECTABLE [Suspect]
     Active Substance: CYCLOPHOSPHAMIDE
     Indication: CARDIAC AMYLOIDOSIS
     Dosage: 300MG/M2 MAX 500 MG ON DAYS 1, 8, 15
     Route: 065
  3. DEXAMETHASONE. [Suspect]
     Active Substance: DEXAMETHASONE
     Indication: CARDIAC AMYLOIDOSIS
     Dosage: 10 OR 20 MG, 4 TO 8 DOSES ON DAYS 1, 8 AND 15
     Route: 048

REACTIONS (2)
  - Amyloidosis [Fatal]
  - Disease progression [Fatal]
